FAERS Safety Report 8462879 (Version 4)
Quarter: 2013Q3

REPORT INFORMATION
  Report Type: Spontaneous
  Country: US (occurrence: US)
  Receive Date: 20120316
  Receipt Date: 20130918
  Transmission Date: 20140515
  Serious: Yes (Other)
  Sender: FDA-Public Use
  Company Number: US-JNJFOC-20120305716

PATIENT
  Age: 32 Year
  Sex: Female
  Weight: 54.43 kg

DRUGS (3)
  1. NUCYNTA [Suspect]
     Indication: FIBROMYALGIA
     Dosage: 3 TIMES A DAY
     Route: 048
     Dates: start: 201202, end: 20120306
  2. NUCYNTA [Suspect]
     Indication: FIBROMYALGIA
     Dosage: TWICE A DAY
     Route: 048
     Dates: start: 20120306
  3. NUCYNTA [Suspect]
     Indication: FIBROMYALGIA
     Dosage: 4 TIMES A DAY
     Route: 048
     Dates: start: 2011, end: 201202

REACTIONS (5)
  - Platelet count increased [Not Recovered/Not Resolved]
  - Lymphadenopathy [Not Recovered/Not Resolved]
  - Withdrawal syndrome [Not Recovered/Not Resolved]
  - Panic attack [Not Recovered/Not Resolved]
  - Treatment noncompliance [Unknown]
